FAERS Safety Report 9521439 (Version 1)
Quarter: 2013Q1

REPORT INFORMATION
  Report Type: Spontaneous
  Country: US (occurrence: None)
  Receive Date: 20130305
  Receipt Date: 20130305
  Transmission Date: 20140127
  Serious: Yes (Other)
  Sender: FDA-Public Use
  Company Number: 163-21880-12072219

PATIENT
  Age: 76 Year
  Sex: Male

DRUGS (4)
  1. REVLIMID (LENALIDOMIDE) (25 MILLIGRAM, CAPSULES) [Suspect]
     Indication: PLASMA CELL MYELOMA
     Dosage: 25 M, 1 IN 1 D, PO
     Route: 048
     Dates: start: 20090723, end: 2009
  2. METOPROLOL TARTRATE (METOPROLOL TARTRATE) (UNKNOWN) [Concomitant]
  3. TAMSULOSIN HCL (TAMSULOSIN HYDROCHLORIDE) (UNKNOWN) [Concomitant]
  4. PRILOSEC (OMEPRAZOLE) (UNKNOWN) [Concomitant]

REACTIONS (2)
  - Thrombocytopenia [None]
  - Full blood count decreased [None]
